FAERS Safety Report 9681160 (Version 1)
Quarter: 2013Q4

REPORT INFORMATION
  Report Type: Spontaneous
  Country: GB (occurrence: GB)
  Receive Date: 20131111
  Receipt Date: 20131111
  Transmission Date: 20140711
  Serious: Yes (Other)
  Sender: FDA-Public Use
  Company Number: GB-ASTRAZENECA-2013SE80179

PATIENT
  Age: 29 Year
  Sex: 0
  Weight: 95 kg

DRUGS (4)
  1. XYLOCAINE [Suspect]
     Indication: TOOTH EXTRACTION
     Dosage: 80 MG
     Route: 004
     Dates: start: 20130903, end: 20130903
  2. XYLOCAINE [Suspect]
     Indication: DENTAL CARE
     Dosage: 80 MG
     Route: 004
     Dates: start: 20130903, end: 20130903
  3. XYLOCAINE [Suspect]
     Indication: TOOTH EXTRACTION
     Dosage: 100 MG
     Route: 004
     Dates: start: 20131014, end: 20131014
  4. XYLOCAINE [Suspect]
     Indication: DENTAL CARE
     Dosage: 100 MG
     Route: 004
     Dates: start: 20131014, end: 20131014

REACTIONS (1)
  - Toxicity to various agents [Recovered/Resolved]
